FAERS Safety Report 13345931 (Version 1)
Quarter: 2017Q1

REPORT INFORMATION
  Report Type: Spontaneous
  Country: US (occurrence: US)
  Receive Date: 20170317
  Receipt Date: 20170317
  Transmission Date: 20170428
  Serious: No
  Sender: FDA-Public Use
  Company Number: None

PATIENT
  Age: 48 Year
  Sex: Female
  Weight: 74.91 kg

DRUGS (18)
  1. IBUPROFEN. [Concomitant]
     Active Substance: IBUPROFEN
  2. TIZANIDINE. [Concomitant]
     Active Substance: TIZANIDINE
  3. PREGABALIN. [Concomitant]
     Active Substance: PREGABALIN
  4. SEROQUEL [Concomitant]
     Active Substance: QUETIAPINE FUMARATE
  5. SUMATRIPTAN. [Concomitant]
     Active Substance: SUMATRIPTAN
  6. LYRICA [Suspect]
     Active Substance: PREGABALIN
     Indication: FIBROMYALGIA
     Dosage: 1-PO BID FOR 1 WEEK TWICE A DAY
     Route: 048
     Dates: start: 20161227
  7. CAPSAICIN. [Concomitant]
     Active Substance: CAPSAICIN
  8. DIVALPROEX [Concomitant]
     Active Substance: DIVALPROEX SODIUM
  9. ONDANSETRON [Concomitant]
     Active Substance: ONDANSETRON
  10. SENNALAX-S [Concomitant]
     Active Substance: DOCUSATE SODIUM\SENNOSIDES
  11. SOLIFENACIN [Concomitant]
     Active Substance: SOLIFENACIN
  12. TOPIRAMATE. [Concomitant]
     Active Substance: TOPIRAMATE
  13. NEXIUM [Concomitant]
     Active Substance: ESOMEPRAZOLE MAGNESIUM
  14. TRAMADOL. [Concomitant]
     Active Substance: TRAMADOL
  15. PREMARIN [Concomitant]
     Active Substance: ESTROGENS, CONJUGATED
  16. DULOXETINE. [Concomitant]
     Active Substance: DULOXETINE
  17. METPROLO SUCCINATE [Concomitant]
  18. PRAVASTATIN. [Concomitant]
     Active Substance: PRAVASTATIN

REACTIONS (1)
  - Nightmare [None]

NARRATIVE: CASE EVENT DATE: 20170117
